FAERS Safety Report 11660012 (Version 1)
Quarter: 2015Q4

REPORT INFORMATION
  Report Type: Spontaneous
  Country: US (occurrence: US)
  Receive Date: 20151026
  Receipt Date: 20151026
  Transmission Date: 20160304
  Serious: Yes (Death)
  Sender: FDA-Public Use
  Company Number: US-SA-2015SA165708

PATIENT
  Age: 58 Year
  Sex: Male
  Weight: 59.42 kg

DRUGS (1)
  1. FABRAZYME [Suspect]
     Active Substance: AGALSIDASE BETA
     Indication: FABRY^S DISEASE
     Route: 041
     Dates: start: 20111010, end: 20131020

REACTIONS (1)
  - Death [Fatal]

NARRATIVE: CASE EVENT DATE: 20131020
